FAERS Safety Report 9224387 (Version 1)
Quarter: 2013Q2

REPORT INFORMATION
  Report Type: Spontaneous
  Country: US (occurrence: None)
  Receive Date: 20130409
  Receipt Date: 20130409
  Transmission Date: 20140414
  Serious: Yes (Other)
  Sender: FDA-Public Use
  Company Number: None

PATIENT
  Age: 71 Year
  Sex: Female
  Weight: 54.43 kg

DRUGS (1)
  1. SMZ/TMP DS 800-160 TAB (GENERIC) [Suspect]
     Indication: SINUSITIS
     Dosage: 1/2 PILL  TOOK ONE TIME ONLY.
     Dates: start: 20130320

REACTIONS (2)
  - Feeling abnormal [None]
  - Abdominal pain upper [None]
